FAERS Safety Report 9205186 (Version 1)
Quarter: 2013Q2

REPORT INFORMATION
  Report Type: Spontaneous
  Country: IN (occurrence: IN)
  Receive Date: 20130402
  Receipt Date: 20130402
  Transmission Date: 20140414
  Serious: Yes (Other)
  Sender: FDA-Public Use
  Company Number: PHHY2013IN030265

PATIENT
  Age: 31 Year
  Sex: Male

DRUGS (4)
  1. WARFARIN [Suspect]
     Dosage: 5 MG, UNK
  2. WARFARIN [Suspect]
     Dosage: 2 MG, PER DAY
  3. CLEXANE [Concomitant]
     Dosage: 50 MG, DAILY
     Route: 058
  4. HEPARIN [Concomitant]

REACTIONS (6)
  - Local swelling [Unknown]
  - Skin necrosis [Unknown]
  - International normalised ratio increased [Recovering/Resolving]
  - Petechiae [Unknown]
  - Erythema [Unknown]
  - Skin lesion [Unknown]
